FAERS Safety Report 8459451-0 (Version None)
Quarter: 2012Q2

REPORT INFORMATION
  Report Type: 
  Country: None (occurrence: None)
  Receive Date: 20120622
  Receipt Date: 20120615
  Transmission Date: 20120825
  Serious: Yes (Hospitalization)
  Sender: FDA-Public Use
  Company Number: KR-B.I. PHARMACEUTICALS,INC./RIDGEFIELD-2012-EU-03250GL

PATIENT
  Age: 71 Year
  Sex: Female

DRUGS (9)
  1. TELMISARTAN [Suspect]
     Indication: HYPERTENSION
     Dosage: 40 MG
     Route: 065
     Dates: start: 20111227
  2. TELMISARTAN [Suspect]
     Indication: CARDIAC FAILURE
  3. SPIRONOLACTONE [Concomitant]
  4. ASPIRIN [Concomitant]
  5. FUROSEMIDE [Concomitant]
  6. RABEPRAZOLE SODIUM [Concomitant]
  7. MAGNESIUM HYDROXIDE TAB [Concomitant]
  8. NEBIVOLOL HCL [Concomitant]
  9. ITOPRIDE HYDROCHLORIDE [Concomitant]

REACTIONS (5)
  - PRURITUS GENERALISED [None]
  - DYSPNOEA [None]
  - BLOOD PRESSURE INCREASED [None]
  - WHEEZING [None]
  - ANGIOEDEMA [None]
